FAERS Safety Report 24623834 (Version 1)
Quarter: 2024Q4

REPORT INFORMATION
  Report Type: Spontaneous
  Country: US (occurrence: None)
  Receive Date: 20241115
  Receipt Date: 20241115
  Transmission Date: 20250114
  Serious: Yes (Hospitalization)
  Sender: Public
  Company Number: None

PATIENT
  Age: 72 Year
  Sex: Male

DRUGS (1)
  1. ALPROSTADIL [Suspect]
     Active Substance: ALPROSTADIL

REACTIONS (1)
  - Priapism [None]

NARRATIVE: CASE EVENT DATE: 20240923
